FAERS Safety Report 6158492-6 (Version None)
Quarter: 2009Q2

REPORT INFORMATION
  Report Type: 
  Country: None (occurrence: None)
  Receive Date: 20090415
  Receipt Date: 20090415
  Transmission Date: 20091009
  Serious: No
  Sender: FDA-Public Use
  Company Number: None

PATIENT
  Sex: Female

DRUGS (2)
  1. METOPROLOL SUCCINATE EXTENDED RELEASE [Suspect]
     Indication: HYPERTENSION
     Dosage: ONE DAILY PO SINCE GENERIC AVAILABLE
     Route: 048
  2. METOPROLOL SUCCINATE EXTENDED RELEASE [Suspect]
     Indication: LEFT VENTRICULAR DYSFUNCTION
     Dosage: ONE DAILY PO SINCE GENERIC AVAILABLE
     Route: 048

REACTIONS (7)
  - CHEST PAIN [None]
  - DRY EYE [None]
  - DYSPEPSIA [None]
  - PRODUCT QUALITY ISSUE [None]
  - RASH PRURITIC [None]
  - VISION BLURRED [None]
  - WEIGHT INCREASED [None]
